FAERS Safety Report 15336512 (Version 4)
Quarter: 2020Q4

REPORT INFORMATION
  Report Type: Spontaneous
  Country: DE (occurrence: DE)
  Receive Date: 20180830
  Receipt Date: 20201207
  Transmission Date: 20210113
  Serious: Yes (Life-Threatening, Hospitalization, Disabling)
  Sender: FDA-Public Use
  Company Number: PHHY2018DE084522

PATIENT
  Age: 45 Year
  Sex: Female
  Weight: 60 kg

DRUGS (7)
  1. GILENYA [Suspect]
     Active Substance: FINGOLIMOD HYDROCHLORIDE
     Dosage: UNK
     Route: 065
     Dates: start: 2015
  2. VIT B1 [Concomitant]
     Active Substance: THIAMINE HYDROCHLORIDE
     Indication: PRODUCT USED FOR UNKNOWN INDICATION
     Dosage: 1 DF, QD
     Route: 065
  3. EUTHYROX [Concomitant]
     Active Substance: LEVOTHYROXINE SODIUM
     Indication: PRODUCT USED FOR UNKNOWN INDICATION
     Dosage: 1 DF, QD  (MORNING)
     Route: 065
  4. OSTEOPLUS [Concomitant]
     Indication: PRODUCT USED FOR UNKNOWN INDICATION
     Dosage: 1 DF, QD (MORNING)
     Route: 065
  5. GILENYA [Suspect]
     Active Substance: FINGOLIMOD HYDROCHLORIDE
     Indication: MULTIPLE SCLEROSIS
     Dosage: 0.5 MG, QD
     Route: 048
     Dates: start: 2013
  6. CORTISONE [Concomitant]
     Active Substance: CORTISONE
     Indication: MULTIPLE SCLEROSIS RELAPSE
     Dosage: 1000 MG
     Route: 042
  7. PANTOZOL [Concomitant]
     Active Substance: PANTOPRAZOLE SODIUM
     Indication: PRODUCT USED FOR UNKNOWN INDICATION
     Dosage: 1 DF, QD  (MORNING)
     Route: 065

REACTIONS (18)
  - Herpes zoster meningoencephalitis [Recovering/Resolving]
  - Labyrinthitis [Unknown]
  - Vasculitis [Recovering/Resolving]
  - Dysphonia [Unknown]
  - Deafness unilateral [Recovering/Resolving]
  - Ischaemic stroke [Recovering/Resolving]
  - Peripheral nerve paresis [Unknown]
  - Binocular eye movement disorder [Unknown]
  - Dysarthria [Recovering/Resolving]
  - Facial paresis [Unknown]
  - Eye movement disorder [Unknown]
  - Cerebrovascular accident [Recovering/Resolving]
  - Hemiparesis [Recovering/Resolving]
  - Sensory disturbance [Unknown]
  - Disorientation [Unknown]
  - Pupils unequal [Unknown]
  - Fatigue [Not Recovered/Not Resolved]
  - Bradykinesia [Unknown]

NARRATIVE: CASE EVENT DATE: 20180601
